FAERS Safety Report 16687548 (Version 1)
Quarter: 2019Q4

REPORT INFORMATION
  Report Type: Spontaneous
  Country: US (occurrence: US)
  Receive Date: 20190808
  Receipt Date: 20190808
  Transmission Date: 20200122
  Serious: Yes (Other)
  Sender: FDA-Public Use
  Company Number: None

PATIENT
  Age: 13 Year
  Sex: Female
  Weight: 74.25 kg

DRUGS (3)
  1. IMMUNE SYSTEN GUMMER BEARS [Concomitant]
  2. TYLENOL [Concomitant]
     Active Substance: ACETAMINOPHEN
  3. DOVE ADVANCED CARE COOL ESSENTIALS ANTIPERSPIRANT AND DEODORANT [Suspect]
     Active Substance: ALUMINUM ZIRCONIUM TETRACHLOROHYDREX GLY
     Indication: SKIN ODOUR ABNORMAL
     Dosage: ?          QUANTITY:1 OUNCE(S);?
     Route: 061

REACTIONS (1)
  - Application site rash [None]

NARRATIVE: CASE EVENT DATE: 20170524
